FAERS Safety Report 4763100-2 (Version None)
Quarter: 2005Q3

REPORT INFORMATION
  Report Type: 
  Country: None (occurrence: None)
  Receive Date: 20050826
  Receipt Date: 20050411
  Transmission Date: 20060218
  Serious: Yes (Other)
  Sender: FDA-Public Use
  Company Number: USA-2003-0012159

PATIENT
  Age: 44 Year
  Sex: Female
  Weight: 89.8 kg

DRUGS (6)
  1. OXYCONTIN [Suspect]
     Indication: PAIN
     Dosage: 20 MG , BID
  2. ELAVIL [Concomitant]
  3. XANAX [Concomitant]
  4. BUTALBITAL [Concomitant]
  5. VICODIN [Concomitant]
  6. COMPAZINE [Concomitant]

REACTIONS (18)
  - ABDOMINAL PAIN [None]
  - ANXIETY [None]
  - BOWEL SOUNDS ABNORMAL [None]
  - CONDITION AGGRAVATED [None]
  - CONSTIPATION [None]
  - DEPRESSION [None]
  - DRUG DEPENDENCE [None]
  - DRUG INEFFECTIVE [None]
  - DRUG WITHDRAWAL SYNDROME [None]
  - HEADACHE [None]
  - MYALGIA [None]
  - NAUSEA [None]
  - PAIN [None]
  - PYREXIA [None]
  - RED BLOOD CELL SEDIMENTATION RATE INCREASED [None]
  - RENAL CYST [None]
  - URINE ODOUR ABNORMAL [None]
  - VISION BLURRED [None]
